FAERS Safety Report 24373161 (Version 2)
Quarter: 2024Q4

REPORT INFORMATION
  Report Type: Spontaneous
  Country: DE (occurrence: DE)
  Receive Date: 20240927
  Receipt Date: 20241029
  Transmission Date: 20250115
  Serious: Yes (Other)
  Sender: DR REDDYS
  Company Number: DE-GERMAN-SPO/DEU/24/0013996

PATIENT
  Age: 56 Year
  Sex: Female

DRUGS (11)
  1. CYCLOPHOSPHAMIDE [Suspect]
     Active Substance: CYCLOPHOSPHAMIDE
     Indication: Lichen planus
     Dosage: ADMINISTERED IN 10 CYCLES OF 750MG EACH
  2. mometasonfuorate [Concomitant]
     Indication: Lichen planus
     Dosage: TO THE SCALP
  3. TACROLIMUS [Concomitant]
     Active Substance: TACROLIMUS
     Indication: Lichen planus
  4. BUDESONIDE [Concomitant]
     Active Substance: BUDESONIDE
     Indication: Lichen planus
     Dosage: ORAL BUDESONIDE GEL 0.5MG BID
     Route: 048
  5. BUDESONIDE [Concomitant]
     Active Substance: BUDESONIDE
     Route: 061
  6. PREDNISOLONE [Concomitant]
     Active Substance: PREDNISOLONE
     Indication: Lichen planus
  7. ACITRETIN [Concomitant]
     Active Substance: ACITRETIN
     Indication: Lichen planus
  8. ALITRETINOIN [Concomitant]
     Active Substance: ALITRETINOIN
     Indication: Lichen planus
  9. ADALIMUMAB [Concomitant]
     Active Substance: ADALIMUMAB
     Indication: Lichen planus
  10. HYDROXYCHLOROQUINE [Concomitant]
     Active Substance: HYDROXYCHLOROQUINE
     Indication: Lichen planus
  11. MYCOPHENOLATE MOFETIL [Concomitant]
     Active Substance: MYCOPHENOLATE MOFETIL
     Indication: Lichen planus

REACTIONS (2)
  - Haematotoxicity [Unknown]
  - Drug ineffective for unapproved indication [Unknown]
